FAERS Safety Report 11663001 (Version 1)
Quarter: 2015Q4

REPORT INFORMATION
  Report Type: Spontaneous
  Country: US (occurrence: US)
  Receive Date: 20151027
  Receipt Date: 20151027
  Transmission Date: 20160304
  Serious: No
  Sender: FDA-Public Use
  Company Number: US-MEDA-2009120027

PATIENT
  Age: 62 Year
  Sex: Male

DRUGS (3)
  1. ACTIQ [Concomitant]
     Active Substance: FENTANYL CITRATE
     Indication: PAIN
  2. ONSOLIS [Suspect]
     Active Substance: FENTANYL CITRATE
     Indication: CANCER PAIN
     Dosage: 800 TO 1200 MCG
     Route: 002
     Dates: start: 200912
  3. FENTORA [Concomitant]
     Active Substance: FENTANYL CITRATE
     Indication: PAIN
     Route: 048

REACTIONS (1)
  - Dry mouth [Not Recovered/Not Resolved]

NARRATIVE: CASE EVENT DATE: 200912
